FAERS Safety Report 4263726-9 (Version None)
Quarter: 2004Q1

REPORT INFORMATION
  Report Type: 
  Country: None (occurrence: None)
  Receive Date: 20040102
  Receipt Date: 20010102
  Transmission Date: 20041129
  Serious: Yes (Other)
  Sender: FDA-Public Use
  Company Number: USA020616863

PATIENT
  Age: 45 Year
  Sex: Male
  Weight: 132 kg

DRUGS (4)
  1. ZYPREXA [Suspect]
     Indication: DEPRESSION
     Dosage: 2.5 MG/DAY
     Route: 048
     Dates: end: 20020602
  2. GLYBURIDE [Concomitant]
  3. GLUCOPHAGE [Concomitant]
  4. ATENOLOL [Concomitant]

REACTIONS (6)
  - BLOOD TRIGLYCERIDES INCREASED [None]
  - CONDITION AGGRAVATED [None]
  - DEPRESSION [None]
  - DIABETES MELLITUS [None]
  - GLYCOSYLATED HAEMOGLOBIN INCREASED [None]
  - PANCREATIC NECROSIS [None]
